FAERS Safety Report 9958701 (Version 2)
Quarter: 2014Q3

REPORT INFORMATION
  Report Type: Spontaneous
  Country: US (occurrence: None)
  Receive Date: 20140227
  Receipt Date: 20140729
  Transmission Date: 20150326
  Serious: Yes (Death)
  Sender: FDA-Public Use
  Company Number: 1713747-2014-99910

PATIENT
  Age: 67 Year
  Sex: Female

DRUGS (3)
  1. DELFLEX WITH DEXTROSE 2.5% LOW MAGNESIUM LOW CALCIUM [Suspect]
     Active Substance: CALCIUM CHLORIDE\DEXTROSE MONOHYDRATE\MAGNESIUM CHLORIDE\SODIUM CHLORIDE\SODIUM LACTATE
     Indication: RENAL FAILURE CHRONIC
     Dosage: PERITONEAL DIALYSIS
  2. LIBERTY CYCLER [Concomitant]
     Active Substance: DEVICE
  3. LIBERTY CYCLER [Concomitant]
     Active Substance: DEVICE

REACTIONS (7)
  - Syncope [None]
  - Wrist fracture [None]
  - Fall [None]
  - Foot fracture [None]
  - Dyspnoea [None]
  - Peritoneal dialysis complication [None]
  - Balance disorder [None]

NARRATIVE: CASE EVENT DATE: 201401
